FAERS Safety Report 5274243-1 (Version None)
Quarter: 2007Q1

REPORT INFORMATION
  Report Type: 
  Country: None (occurrence: None)
  Receive Date: 20070323
  Receipt Date: 20070315
  Transmission Date: 20070707
  Serious: Yes (Disabling)
  Sender: FDA-Public Use
  Company Number: US-JNJFOC-20070304175

PATIENT
  Sex: Female
  Weight: 74.84 kg

DRUGS (4)
  1. DURAGESIC-100 [Suspect]
     Indication: PAIN MANAGEMENT
     Route: 062
  2. COMBIVENT [Concomitant]
     Indication: ASTHMA
     Route: 055
  3. PROTONIX [Concomitant]
     Indication: DYSPEPSIA
     Route: 048
  4. ZOLOFT [Concomitant]
     Indication: DEPRESSION

REACTIONS (4)
  - ARTHRALGIA [None]
  - FALL [None]
  - JOINT INJURY [None]
  - MENOPAUSE [None]
